FAERS Safety Report 15076094 (Version 1)
Quarter: 2018Q2

REPORT INFORMATION
  Report Type: Spontaneous
  Country: US (occurrence: US)
  Receive Date: 20180607
  Receipt Date: 20180607
  Transmission Date: 20180711
  Serious: No
  Sender: FDA-Public Use
  Company Number: None

PATIENT
  Age: 16 Year
  Sex: Male

DRUGS (1)
  1. OMNITROPE [Suspect]
     Active Substance: SOMATROPIN
     Dates: start: 20180209, end: 20180607

REACTIONS (3)
  - Incorrect dose administered [None]
  - Drug ineffective [None]
  - Wrong technique in product usage process [None]

NARRATIVE: CASE EVENT DATE: 20180605
